FAERS Safety Report 9333411 (Version 1)
Quarter: 2013Q2

REPORT INFORMATION
  Report Type: Spontaneous
  Country: US (occurrence: US)
  Receive Date: 20130606
  Receipt Date: 20130606
  Transmission Date: 20140414
  Serious: No
  Sender: FDA-Public Use
  Company Number: US-GLAXOSMITHKLINE-A1006221A

PATIENT
  Age: 68 Year
  Sex: Male

DRUGS (4)
  1. LAMICTAL [Suspect]
     Dosage: 25MG PER DAY
     Route: 048
     Dates: start: 201208, end: 201209
  2. SYNTHROID [Concomitant]
  3. FLOMAX [Concomitant]
  4. CLONAZEPAM [Concomitant]

REACTIONS (6)
  - Musculoskeletal stiffness [Recovering/Resolving]
  - Pyrexia [Recovering/Resolving]
  - Headache [Recovering/Resolving]
  - Pain [Recovering/Resolving]
  - Back pain [Recovering/Resolving]
  - Skin disorder [Recovering/Resolving]
